FAERS Safety Report 5386546-0 (Version None)
Quarter: 2007Q3

REPORT INFORMATION
  Report Type: 
  Country: None (occurrence: None)
  Receive Date: 20070713
  Receipt Date: 20070706
  Transmission Date: 20080115
  Serious: Yes (Death)
  Sender: FDA-Public Use
  Company Number: IT-ASTRAZENECA-2007SE03840

PATIENT
  Age: 27463 Day
  Sex: Female

DRUGS (4)
  1. CRESTOR [Suspect]
     Route: 048
     Dates: start: 20050105
  2. CELEBREX [Suspect]
     Route: 048
     Dates: start: 20070117
  3. BONIVA [Suspect]
     Route: 048
     Dates: start: 20060501
  4. NIMESULIDE [Concomitant]
     Route: 048

REACTIONS (1)
  - HEPATITIS FULMINANT [None]
